FAERS Safety Report 13122472 (Version 2)
Quarter: 2017Q1

REPORT INFORMATION
  Report Type: Spontaneous
  Country: US (occurrence: US)
  Receive Date: 20170117
  Receipt Date: 20170307
  Transmission Date: 20170428
  Serious: Yes (Hospitalization, Other)
  Sender: FDA-Public Use
  Company Number: US-SMITH AND NEPHEW, INC-2017SMT00008

PATIENT
  Age: 59 Year
  Sex: Male
  Weight: 111.11 kg

DRUGS (8)
  1. ASPIRIN. [Concomitant]
     Active Substance: ASPIRIN
     Dosage: 81 MG, 1X/DAY
  2. JARDIANCE [Concomitant]
     Active Substance: EMPAGLIFLOZIN
     Dosage: 25 MG, 1X/DAY
  3. ZYRTEC [Concomitant]
     Active Substance: CETIRIZINE HYDROCHLORIDE
     Dosage: 10 MG, 1X/DAY
  4. LEVOTHYROXINE. [Concomitant]
     Active Substance: LEVOTHYROXINE
     Dosage: 88 ?G, 1X/DAY
  5. LISINOPRIL. [Concomitant]
     Active Substance: LISINOPRIL
  6. PRAVASTATIN. [Concomitant]
     Active Substance: PRAVASTATIN
     Dosage: 40 MG, 1X/DAY
  7. REGRANEX [Suspect]
     Active Substance: BECAPLERMIN
     Indication: DIABETIC ULCER
     Dosage: UNK, 1X/DAY
     Route: 061
     Dates: start: 201612, end: 20161219
  8. METFORMIN [Concomitant]
     Active Substance: METFORMIN HYDROCHLORIDE
     Dosage: 1000 MG, 2X/DAY

REACTIONS (9)
  - Microcytic anaemia [Recovering/Resolving]
  - Bone operation [Recovered/Resolved with Sequelae]
  - Staphylococcal osteomyelitis [Recovering/Resolving]
  - Lactic acidosis [Recovering/Resolving]
  - Staphylococcal abscess [Recovering/Resolving]
  - Gangrene [Recovering/Resolving]
  - Iron deficiency [Recovering/Resolving]
  - Vitamin B12 deficiency [Recovering/Resolving]
  - Staphylococcal sepsis [Recovering/Resolving]

NARRATIVE: CASE EVENT DATE: 20161219
